FAERS Safety Report 4527171-0 (Version None)
Quarter: 2004Q4

REPORT INFORMATION
  Report Type: 
  Country: None (occurrence: None)
  Receive Date: 20041126
  Receipt Date: 20040512
  Transmission Date: 20050328
  Serious: Yes (Other)
  Sender: FDA-Public Use
  Company Number: 2004213081US

PATIENT
  Age: 62 Year
  Sex: Male

DRUGS (1)
  1. ZYVOX [Suspect]
     Dosage: 600 MG, BID, ORAL
     Route: 048
     Dates: end: 20040505

REACTIONS (1)
  - BONE MARROW DEPRESSION [None]
